FAERS Safety Report 7550138-5 (Version None)
Quarter: 2011Q2

REPORT INFORMATION
  Report Type: 
  Country: None (occurrence: None)
  Receive Date: 20110615
  Receipt Date: 20110606
  Transmission Date: 20111010
  Serious: Yes (Hospitalization)
  Sender: FDA-Public Use
  Company Number: US-ASTRAZENECA-2011SE34525

PATIENT
  Age: 62 Year
  Sex: Male

DRUGS (4)
  1. BETA BLOCKER [Concomitant]
  2. PLAVIX [Concomitant]
  3. PROSTATE MEDICATION [Concomitant]
  4. CRESTOR [Suspect]
     Route: 048

REACTIONS (2)
  - CORONARY ARTERY BYPASS [None]
  - MYOCARDIAL INFARCTION [None]
